FAERS Safety Report 23778110 (Version 6)
Quarter: 2025Q3

REPORT INFORMATION
  Report Type: Spontaneous
  Country: US (occurrence: US)
  Receive Date: 20240424
  Receipt Date: 20250904
  Transmission Date: 20251020
  Serious: Yes (Other)
  Sender: BRISTOL-MYERS SQUIBB COMPANY
  Company Number: US-BRISTOL-MYERS SQUIBB COMPANY-2024-062580

PATIENT
  Age: 66 Year
  Sex: Female

DRUGS (5)
  1. THALOMID [Suspect]
     Active Substance: THALIDOMIDE
     Indication: Plasma cell myeloma
     Dosage: DAILY AT BEDTIME
     Route: 048
     Dates: start: 202003
  2. THALOMID [Suspect]
     Active Substance: THALIDOMIDE
     Dosage: AT BEDTIME
     Route: 048
     Dates: start: 202003
  3. THALOMID [Suspect]
     Active Substance: THALIDOMIDE
     Route: 048
     Dates: start: 20210111
  4. THALOMID [Suspect]
     Active Substance: THALIDOMIDE
     Route: 048
     Dates: start: 202003
  5. THALOMID [Suspect]
     Active Substance: THALIDOMIDE
     Dosage: 1 TIME A DAY
     Route: 048
     Dates: start: 202003

REACTIONS (9)
  - Balance disorder [Unknown]
  - Myalgia [Unknown]
  - Neuropathy peripheral [Unknown]
  - Muscle spasms [Unknown]
  - Gait disturbance [Unknown]
  - Arthritis [Unknown]
  - Limb discomfort [Unknown]
  - Pain [Unknown]
  - Paraesthesia [Unknown]
